APPROVED DRUG PRODUCT: SUCRALFATE
Active Ingredient: SUCRALFATE
Strength: 1GM
Dosage Form/Route: TABLET;ORAL
Application: A070848 | Product #001 | TE Code: AB
Applicant: TEVA PHARMACEUTICALS USA INC
Approved: Mar 29, 1996 | RLD: No | RS: No | Type: RX